FAERS Safety Report 8430743-4 (Version None)
Quarter: 2012Q2

REPORT INFORMATION
  Report Type: 
  Country: None (occurrence: None)
  Receive Date: 20120612
  Receipt Date: 20120610
  Transmission Date: 20120825
  Serious: Yes (Other)
  Sender: FDA-Public Use
  Company Number: JP-ABBOTT-12P-087-0935083-00

PATIENT
  Sex: Male

DRUGS (7)
  1. PA TABLETS [Concomitant]
     Indication: BRONCHITIS
     Route: 048
     Dates: start: 20120402, end: 20120404
  2. CLARITHROMYCIN [Suspect]
     Indication: NASOPHARYNGITIS
     Route: 048
     Dates: start: 20120402, end: 20120404
  3. AMLODIPINE BESYLATE [Concomitant]
     Indication: HYPERTENSION
     Route: 048
  4. DAIKENCHUTO [Concomitant]
     Indication: CONSTIPATION
     Route: 048
     Dates: start: 20120406
  5. CLARITHROMYCIN [Suspect]
     Indication: BRONCHITIS
  6. MAGLAX [Suspect]
     Indication: CONSTIPATION
     Route: 048
     Dates: start: 20120406
  7. PA TABLETS [Concomitant]
     Indication: NASOPHARYNGITIS

REACTIONS (10)
  - DRY SKIN [None]
  - RASH [None]
  - CHAPPED LIPS [None]
  - RASH PRURITIC [None]
  - HYPERTENSION [None]
  - SKIN EXFOLIATION [None]
  - RASH PAPULAR [None]
  - LYMPHOCYTE STIMULATION TEST [None]
  - DRUG ERUPTION [None]
  - LYMPHOCYTE STIMULATION TEST POSITIVE [None]
